FAERS Safety Report 22097190 (Version 6)
Quarter: 2023Q2

REPORT INFORMATION
  Report Type: Spontaneous
  Country: JP (occurrence: JP)
  Receive Date: 20230315
  Receipt Date: 20230525
  Transmission Date: 20230722
  Serious: Yes (Hospitalization, Other)
  Sender: FDA-Public Use
  Company Number: JP-AMGEN-JPNSP2022217165

PATIENT
  Age: 84 Year
  Sex: Female

DRUGS (6)
  1. EVENITY [Suspect]
     Active Substance: ROMOSOZUMAB-AQQG
     Indication: Osteoporosis
     Dosage: 210 MILLIGRAM, QMO
     Route: 058
  2. CALONAL [Concomitant]
     Active Substance: ACETAMINOPHEN
     Dosage: 300 MILLIGRAM
  3. LOXOPROFEN SODIUM [Concomitant]
     Active Substance: LOXOPROFEN SODIUM
     Indication: Injection site pain
     Dosage: UNK
     Dates: start: 20230407
  4. ELCATONIN [Concomitant]
     Active Substance: ELCATONIN
     Dosage: UNK
  5. DOMPERIDONE [Concomitant]
     Active Substance: DOMPERIDONE
     Dosage: UNK
  6. ACETAMINOPHEN\TRAMADOL HYDROCHLORIDE [Concomitant]
     Active Substance: ACETAMINOPHEN\TRAMADOL HYDROCHLORIDE
     Dosage: UNK

REACTIONS (34)
  - Diarrhoea [Unknown]
  - Pain [Unknown]
  - Feeding disorder [Unknown]
  - Fatigue [Unknown]
  - Gastroptosis [Unknown]
  - Muscle atrophy [Unknown]
  - Back pain [Unknown]
  - Gastritis [Unknown]
  - Fall [Unknown]
  - Weight decreased [Unknown]
  - Nausea [Unknown]
  - Injury [Unknown]
  - Urinary retention [Unknown]
  - Multiple fractures [Unknown]
  - Therapeutic product effect decreased [Unknown]
  - Pain in extremity [Unknown]
  - Wrong technique in product usage process [Unknown]
  - Injection site pruritus [Recovering/Resolving]
  - Defaecation disorder [Unknown]
  - Dyspepsia [Unknown]
  - Abdominal distension [Unknown]
  - Liver disorder [Unknown]
  - Renal disorder [Unknown]
  - Arthralgia [Unknown]
  - Decreased appetite [Unknown]
  - Injection site pain [Unknown]
  - Abdominal discomfort [Unknown]
  - Nasopharyngitis [Unknown]
  - Headache [Unknown]
  - Pyrexia [Unknown]
  - Insomnia [Unknown]
  - Restlessness [Unknown]
  - Abnormal behaviour [Unknown]
  - Constipation [Unknown]

NARRATIVE: CASE EVENT DATE: 20230406
